FAERS Safety Report 9174532 (Version 1)
Quarter: 2013Q1

REPORT INFORMATION
  Report Type: Spontaneous
  Country: US (occurrence: None)
  Receive Date: 20130313
  Receipt Date: 20130313
  Transmission Date: 20140127
  Serious: Yes (Other)
  Sender: FDA-Public Use
  Company Number: 2013AP003454

PATIENT
  Sex: Female

DRUGS (1)
  1. ALENDRONATE SODIUM TABLETS [Suspect]
     Indication: OSTEOPOROSIS

REACTIONS (11)
  - Multiple injuries [None]
  - Osteogenesis imperfecta [None]
  - Stress fracture [None]
  - Asthenia [None]
  - Pain [None]
  - Emotional disorder [None]
  - Mental disorder [None]
  - Anxiety [None]
  - Anxiety [None]
  - Fear [None]
  - Quality of life decreased [None]
